FAERS Safety Report 16226718 (Version 1)
Quarter: 2019Q2

REPORT INFORMATION
  Report Type: Spontaneous
  Country: FR (occurrence: FR)
  Receive Date: 20190423
  Receipt Date: 20190423
  Transmission Date: 20190711
  Serious: Yes (Hospitalization, Other)
  Sender: FDA-Public Use
  Company Number: FR-BRISTOL-MYERS SQUIBB COMPANY-BMS-2019-037337

PATIENT
  Age: 57 Year
  Sex: Female
  Weight: 55 kg

DRUGS (1)
  1. OPDIVO [Suspect]
     Active Substance: NIVOLUMAB
     Indication: THYMOMA
     Dosage: 1 DOSAGE FORM, Q2WK
     Route: 041
     Dates: end: 20190307

REACTIONS (3)
  - Product use in unapproved indication [Unknown]
  - Diabetes mellitus [Not Recovered/Not Resolved]
  - Diabetic ketoacidosis [Recovered/Resolved]

NARRATIVE: CASE EVENT DATE: 20190307
